FAERS Safety Report 6062982-4 (Version None)
Quarter: 2009Q1

REPORT INFORMATION
  Report Type: 
  Country: None (occurrence: None)
  Receive Date: 20090203
  Receipt Date: 20090123
  Transmission Date: 20090719
  Serious: Yes (Death, Hospitalization)
  Sender: FDA-Public Use
  Company Number: B0555776A

PATIENT
  Age: 69 Year
  Sex: Male

DRUGS (10)
  1. AVANDIA [Suspect]
     Dosage: 8MG PER DAY
     Route: 048
     Dates: end: 20080825
  2. ZYLORIC [Suspect]
     Dosage: 300MG PER DAY
     Route: 048
  3. GLUCOPHAGE [Suspect]
     Dosage: 850MG TWICE PER DAY
     Route: 048
     Dates: start: 20020101, end: 20080825
  4. TRANDATE [Suspect]
     Dosage: 200MG THREE TIMES PER DAY
     Route: 048
     Dates: end: 20080825
  5. CORDARONE [Suspect]
     Dosage: 200MG PER DAY
     Route: 048
     Dates: end: 20080825
  6. NICARDIPINE HCL [Suspect]
     Dosage: 50MG PER DAY
     Route: 048
     Dates: end: 20080825
  7. PREVISCAN [Suspect]
     Dosage: 15MG PER DAY
     Route: 065
     Dates: end: 20080825
  8. CRESTOR [Suspect]
     Dosage: 10MG TWICE PER DAY
     Route: 048
  9. LASILIX [Suspect]
     Dosage: 40MG PER DAY
     Route: 048
  10. DOMPERIDONE [Suspect]
     Dosage: 10MG PER DAY
     Route: 048

REACTIONS (12)
  - ANURIA [None]
  - CARDIO-RESPIRATORY ARREST [None]
  - CARDIOGENIC SHOCK [None]
  - GENERAL PHYSICAL HEALTH DETERIORATION [None]
  - LACTIC ACIDOSIS [None]
  - LOSS OF CONSCIOUSNESS [None]
  - NAUSEA [None]
  - OEDEMA PERIPHERAL [None]
  - PAIN IN EXTREMITY [None]
  - SPUTUM DISCOLOURED [None]
  - TRANSAMINASES INCREASED [None]
  - VOMITING [None]
